FAERS Safety Report 20920596 (Version 1)
Quarter: 2022Q2

REPORT INFORMATION
  Report Type: Spontaneous
  Country: US (occurrence: None)
  Receive Date: 20220606
  Receipt Date: 20220606
  Transmission Date: 20220721
  Serious: No
  Sender: FDA-Public Use
  Company Number: None

PATIENT
  Age: 74 Year
  Sex: Male
  Weight: 91 kg

DRUGS (1)
  1. LORAZEPAM [Suspect]
     Active Substance: LORAZEPAM
     Indication: Agitation
     Dosage: FREQUENCY : ONCE;?
     Route: 042
     Dates: start: 20220323, end: 20220323

REACTIONS (8)
  - Hemiparesis [None]
  - Fall [None]
  - Mental disorder [None]
  - Hepatic encephalopathy [None]
  - Hepatic cirrhosis [None]
  - Acute kidney injury [None]
  - Depressed level of consciousness [None]
  - Unresponsive to stimuli [None]

NARRATIVE: CASE EVENT DATE: 20220324
